FAERS Safety Report 6548849-3 (Version None)
Quarter: 2010Q1

REPORT INFORMATION
  Report Type: 
  Country: None (occurrence: None)
  Receive Date: 20100124
  Receipt Date: 20091217
  Transmission Date: 20100710
  Serious: No
  Sender: FDA-Public Use
  Company Number: US-ALLERGAN-0917369US

PATIENT
  Sex: Male

DRUGS (2)
  1. RESTASIS [Suspect]
     Indication: DRY EYE
     Dosage: 1 GTT, BID
     Route: 047
     Dates: start: 20090701, end: 20090801
  2. RESTASIS [Suspect]
     Dosage: 1 GTT, QD
     Route: 047
     Dates: start: 20090901

REACTIONS (2)
  - PRURITUS [None]
  - RASH [None]
